FAERS Safety Report 5640957-4 (Version None)
Quarter: 2008Q1

REPORT INFORMATION
  Report Type: 
  Country: None (occurrence: None)
  Receive Date: 20080225
  Receipt Date: 20080207
  Transmission Date: 20080703
  Serious: Yes (Other)
  Sender: FDA-Public Use
  Company Number: CHPA2008US02653

PATIENT
  Age: 30 Year
  Sex: Male

DRUGS (3)
  1. GAS-X CHEWABLE TABLETS CHERRY CREME (NCH)(SIMETHICONE) CHEWABLE TABLET [Suspect]
     Indication: STOMACH DISCOMFORT
     Dosage: 80 MG, ONCE/SINGLE, ORAL
     Route: 048
     Dates: start: 20080207
  2. TUMS(CALCIUM CARBONATE) [Suspect]
     Indication: STOMACH DISCOMFORT
  3. IMODIUM [Suspect]
     Indication: STOMACH DISCOMFORT

REACTIONS (1)
  - ABDOMINAL PAIN UPPER [None]
